FAERS Safety Report 6738822-4 (Version None)
Quarter: 2010Q2

REPORT INFORMATION
  Report Type: 
  Country: None (occurrence: None)
  Receive Date: 20100524
  Receipt Date: 20100511
  Transmission Date: 20101027
  Serious: Yes (Other)
  Sender: FDA-Public Use
  Company Number: US-JNJFOC-20100505435

PATIENT
  Age: 16 Month
  Sex: Male
  Weight: 13.61 kg

DRUGS (4)
  1. CONCENTRATED MOTRIN INFANTS DROPS [Suspect]
     Route: 048
  2. CONCENTRATED MOTRIN INFANTS DROPS [Suspect]
     Indication: PYREXIA
     Route: 048
  3. CONCENTRATED TYLENOL INFANT DROPS [Suspect]
     Route: 048
  4. CONCENTRATED TYLENOL INFANT DROPS [Suspect]
     Indication: PYREXIA
     Route: 048

REACTIONS (6)
  - BODY TEMPERATURE DECREASED [None]
  - DEPRESSED LEVEL OF CONSCIOUSNESS [None]
  - DRUG INEFFECTIVE [None]
  - HYPOTHERMIA [None]
  - LETHARGY [None]
  - PRODUCT QUALITY ISSUE [None]
